FAERS Safety Report 7342662-5 (Version None)
Quarter: 2011Q1

REPORT INFORMATION
  Report Type: 
  Country: None (occurrence: None)
  Receive Date: 20110310
  Receipt Date: 20110228
  Transmission Date: 20110831
  Serious: Yes (Death)
  Sender: FDA-Public Use
  Company Number: US-CELGENEUS-163-21880-11030101

PATIENT
  Sex: Male

DRUGS (10)
  1. MORPHINE [Concomitant]
     Route: 048
     Dates: start: 20090101
  2. REVLIMID [Suspect]
     Indication: MULTIPLE MYELOMA
     Dosage: 25 MILLIGRAM
     Route: 048
     Dates: start: 20110110, end: 20110201
  3. VERAPAMIL [Concomitant]
     Route: 048
     Dates: start: 19900101
  4. COUMADIN [Concomitant]
     Route: 048
     Dates: start: 20110126
  5. LORTAB [Concomitant]
     Route: 048
     Dates: start: 20090101
  6. POTASSIUM [Concomitant]
     Route: 048
     Dates: start: 19900101
  7. VALSARTAN [Concomitant]
     Route: 048
     Dates: start: 20090101
  8. DEXAMETHASONE [Concomitant]
     Dosage: 40 MILLIGRAM
     Route: 048
     Dates: start: 20110101
  9. HYDROCHLOROTHIAZIDE [Concomitant]
     Dosage: 25 MILLIGRAM
     Route: 048
     Dates: start: 20090101
  10. LOVENOX [Concomitant]
     Route: 050
     Dates: start: 20110126, end: 20110101

REACTIONS (1)
  - DEATH [None]
